FAERS Safety Report 6683688-4 (Version None)
Quarter: 2010Q2

REPORT INFORMATION
  Report Type: 
  Country: None (occurrence: None)
  Receive Date: 20100416
  Receipt Date: 20100407
  Transmission Date: 20101027
  Serious: Yes (Other)
  Sender: FDA-Public Use
  Company Number: US-BIOGENIDEC-2010BI012013

PATIENT
  Sex: Female

DRUGS (5)
  1. AVONEX [Suspect]
     Indication: MULTIPLE SCLEROSIS
     Route: 030
  2. AVONEX [Suspect]
     Route: 030
  3. SOLU-MEDROL [Concomitant]
  4. VITAMIN B-12 [Concomitant]
  5. CHEMOTHERAPY [Concomitant]

REACTIONS (3)
  - INJECTION SITE PAIN [None]
  - MASTECTOMY [None]
  - MYOCARDIAL INFARCTION [None]
